FAERS Safety Report 19687878 (Version 2)
Quarter: 2021Q3

REPORT INFORMATION
  Report Type: Spontaneous
  Country: US (occurrence: US)
  Receive Date: 20210812
  Receipt Date: 20210820
  Transmission Date: 20211014
  Serious: No
  Sender: FDA-Public Use
  Company Number: US-JNJFOC-20210808897

PATIENT
  Age: 57 Year
  Sex: Female

DRUGS (1)
  1. WOMENS ROGAINE UNSCENTED [Suspect]
     Active Substance: MINOXIDIL
     Indication: ALOPECIA
     Dosage: DOSE: CAN^T REMEMBER
     Route: 061
     Dates: start: 202103

REACTIONS (3)
  - Application site rash [Unknown]
  - Contraindicated product administered [Unknown]
  - Product use in unapproved indication [Unknown]
